FAERS Safety Report 5476835-3 (Version None)
Quarter: 2007Q4

REPORT INFORMATION
  Report Type: 
  Country: None (occurrence: None)
  Receive Date: 20071003
  Receipt Date: 20071003
  Transmission Date: 20080405
  Serious: Yes (Other)
  Sender: FDA-Public Use
  Company Number: None

PATIENT

DRUGS (1)
  1. CRESTOR [Suspect]
     Indication: HYPERLIPIDAEMIA
     Dosage: 20MG DAILY PO
     Route: 048
     Dates: start: 20070106, end: 20070210

REACTIONS (6)
  - HEADACHE [None]
  - MUSCULAR WEAKNESS [None]
  - SENSATION OF HEAVINESS [None]
  - SENSORY DISTURBANCE [None]
  - SPEECH DISORDER [None]
  - TONGUE DISORDER [None]
